FAERS Safety Report 4551991-X (Version None)
Quarter: 2005Q1

REPORT INFORMATION
  Report Type: 
  Country: None (occurrence: None)
  Receive Date: 20050112
  Receipt Date: 20041230
  Transmission Date: 20050727
  Serious: Yes (Life-Threatening)
  Sender: FDA-Public Use
  Company Number: BRO-007970

PATIENT
  Age: 20 Year
  Sex: Male

DRUGS (1)
  1. IOPAMIDOL/IOPAMIRON 370 (BATCH # (S): 43756) [Suspect]
     Indication: COMPUTERISED TOMOGRAM
     Dosage: 100 ML, IV
     Route: 042
     Dates: start: 20041112, end: 20041112

REACTIONS (6)
  - CARDIAC FAILURE ACUTE [None]
  - CONDITION AGGRAVATED [None]
  - DRUG INEFFECTIVE [None]
  - FLUID OVERLOAD [None]
  - HEART RATE INCREASED [None]
  - WHEEZING [None]
